FAERS Safety Report 25177488 (Version 1)
Quarter: 2025Q2

REPORT INFORMATION
  Report Type: Spontaneous
  Country: FR (occurrence: FR)
  Receive Date: 20250409
  Receipt Date: 20250409
  Transmission Date: 20250716
  Serious: Yes (Life-Threatening, Other)
  Sender: CHEPLAPHARM
  Company Number: None

PATIENT
  Age: 51 Year
  Sex: Female

DRUGS (7)
  1. QUETIAPINE [Suspect]
     Active Substance: QUETIAPINE
     Indication: Product used for unknown indication
     Route: 048
  2. AMITRIPTYLINE HYDROCHLORIDE [Suspect]
     Active Substance: AMITRIPTYLINE HYDROCHLORIDE
     Indication: Product used for unknown indication
     Route: 048
  3. OXAZEPAM [Suspect]
     Active Substance: OXAZEPAM
     Indication: Product used for unknown indication
     Route: 048
  4. LYRICA [Suspect]
     Active Substance: PREGABALIN
     Indication: Product used for unknown indication
     Route: 048
  5. ZOPICLONE [Suspect]
     Active Substance: ZOPICLONE
     Indication: Product used for unknown indication
     Route: 048
  6. ZOLPIDEM [Suspect]
     Active Substance: ZOLPIDEM TARTRATE
     Indication: Product used for unknown indication
     Route: 048
  7. LEVOTHYROXINE [Concomitant]
     Active Substance: LEVOTHYROXINE

REACTIONS (15)
  - Intentional overdose [Recovered/Resolved]
  - Coma [Recovering/Resolving]
  - Respiratory failure [Unknown]
  - Altered state of consciousness [Unknown]
  - Cardiac dysfunction [Unknown]
  - CSF protein increased [Unknown]
  - Rhinitis [Unknown]
  - Arthralgia [Unknown]
  - Gait disturbance [Unknown]
  - Neurological decompensation [Unknown]
  - Hypotension [Unknown]
  - Bronchopulmonary disease [Unknown]
  - Staphylococcal infection [Unknown]
  - Candida infection [Unknown]
  - HCoV-OC43 infection [Unknown]

NARRATIVE: CASE EVENT DATE: 20250305
